FAERS Safety Report 8154029-0 (Version None)
Quarter: 2012Q1

REPORT INFORMATION
  Report Type: 
  Country: None (occurrence: None)
  Receive Date: 20120221
  Receipt Date: 20120221
  Transmission Date: 20120608
  Serious: Yes (Other)
  Sender: FDA-Public Use
  Company Number: None

PATIENT
  Sex: Female
  Weight: 89.357 kg

DRUGS (1)
  1. REMICADE [Suspect]

REACTIONS (2)
  - HYPOAESTHESIA [None]
  - FEELING ABNORMAL [None]
